FAERS Safety Report 12006513 (Version 1)
Quarter: 2016Q1

REPORT INFORMATION
  Report Type: Other
  Country: US (occurrence: US)
  Receive Date: 20160204
  Receipt Date: 20160204
  Transmission Date: 20160526
  Serious: Yes (Hospitalization)
  Sender: FDA-Public Use
  Company Number: US-DEP_13564_2016

PATIENT
  Age: 28 Year
  Sex: Female

DRUGS (17)
  1. MORPHINE SULFATE (MORPHINE SULFATE) [Suspect]
     Active Substance: MORPHINE SULFATE
     Dosage: CONTROLLED RELEASE 120 MG, QD
     Route: 048
  2. GABAPENTIN. [Concomitant]
     Active Substance: GABAPENTIN
     Dosage: 2700 MG/DAY
  3. HYDROCODONE/ACETAMINOPHEN (HYDROCODONE, PARACETAMOL) [Suspect]
     Active Substance: ACETAMINOPHEN\HYDROCODONE
     Indication: BREAKTHROUGH PAIN
     Dosage: 10/325 MG, AS NEEDED, UNKNOWN
  4. CYMBALTA [Concomitant]
     Active Substance: DULOXETINE HYDROCHLORIDE
     Dosage: 40 MG/DAY
  5. KETAMINE [Concomitant]
     Active Substance: KETAMINE
     Dosage: DF
  6. MIDAZOLAM [Concomitant]
     Active Substance: MIDAZOLAM\MIDAZOLAM HYDROCHLORIDE
     Dosage: DF
  7. MORPHINE SULFATE (MORPHINE SULFATE) [Suspect]
     Active Substance: MORPHINE SULFATE
     Dosage: GREATER THAN 20 G/DAY
     Route: 048
  8. METHADONE [Suspect]
     Active Substance: METHADONE HYDROCHLORIDE
     Dosage: 600 MG; QD, UNKNOWN
  9. ZOLEDRONIC ACID [Concomitant]
     Active Substance: ZOLEDRONIC ACID
     Dosage: DF
  10. HYDROCODONE (HYDROCODONE) [Suspect]
     Active Substance: HYDROCODONE
     Indication: PAIN
     Dosage: UNK
  11. FENTANYL. [Suspect]
     Active Substance: FENTANYL
     Indication: PAIN
     Dosage: 100 MCG/ 1 BOTTLE, UNK
  12. METHADONE [Suspect]
     Active Substance: METHADONE HYDROCHLORIDE
     Indication: PAIN
     Dosage: 100 MG/DAY; UNKNOWN
  13. CLONIDINE. [Concomitant]
     Active Substance: CLONIDINE
     Dosage: DF
  14. HYDROMORPHONE (HYDROMORPHONE) [Suspect]
     Active Substance: HYDROMORPHONE
     Indication: PAIN
     Dosage: 2 MG, AS NEEDED, EVERY 4 HOURS
     Route: 048
  15. HYDROMORPHONE (HYDROMORPHONE) [Suspect]
     Active Substance: HYDROMORPHONE
     Dosage: 10 MG,  EVERY 6 HOURS
     Route: 048
  16. MORPHINE SULFATE (MORPHINE SULFATE) [Suspect]
     Active Substance: MORPHINE SULFATE
     Indication: PAIN
     Dosage: GREATER THAN 200 MG/DAY
     Route: 048
  17. METHADONE [Suspect]
     Active Substance: METHADONE HYDROCHLORIDE
     Dosage: 900 MG; QD, UNKNOWN

REACTIONS (6)
  - Drug tolerance [Unknown]
  - Pain [None]
  - Prescribed overdose [Recovered/Resolved]
  - Hyperaesthesia [Unknown]
  - Inadequate analgesia [Unknown]
  - Product use issue [Recovered/Resolved]
